FAERS Safety Report 16534895 (Version 1)
Quarter: 2019Q3

REPORT INFORMATION
  Report Type: Spontaneous
  Country: US (occurrence: US)
  Receive Date: 20190705
  Receipt Date: 20190705
  Transmission Date: 20191004
  Serious: Yes (Hospitalization, Other)
  Sender: FDA-Public Use
  Company Number: US-GLAXOSMITHKLINE-US2019117704

PATIENT
  Age: 45 Year
  Sex: Female

DRUGS (1)
  1. BENLYSTA [Suspect]
     Active Substance: BELIMUMAB
     Indication: PRODUCT USED FOR UNKNOWN INDICATION
     Dosage: UNK UNK, WE
     Route: 058

REACTIONS (8)
  - Chills [Unknown]
  - Abscess limb [Unknown]
  - Abdominal pain [Unknown]
  - Pyrexia [Unknown]
  - Malaise [Unknown]
  - Sepsis [Unknown]
  - Staphylococcal infection [Unknown]
  - Enteritis [Unknown]

NARRATIVE: CASE EVENT DATE: 201906
